FAERS Safety Report 20818766 (Version 1)
Quarter: 2022Q2

REPORT INFORMATION
  Report Type: Spontaneous
  Country: US (occurrence: US)
  Receive Date: 20220512
  Receipt Date: 20220512
  Transmission Date: 20220721
  Serious: No
  Sender: FDA-Public Use
  Company Number: US-KARYOPHARM-2022KPT000500

PATIENT

DRUGS (13)
  1. XPOVIO [Suspect]
     Active Substance: SELINEXOR
     Indication: Plasma cell myeloma
     Dosage: 100 MG, WEEKLY
     Route: 048
     Dates: start: 20220324, end: 20220425
  2. ONDANSETRON [Concomitant]
     Active Substance: ONDANSETRON
  3. PANTOPRAZOLE [Concomitant]
     Active Substance: PANTOPRAZOLE
  4. DEXAMETHASONE [Concomitant]
     Active Substance: DEXAMETHASONE
  5. XTAMPZA ER [Concomitant]
     Active Substance: OXYCODONE
  6. OXYCODONE [Concomitant]
     Active Substance: OXYCODONE
  7. METOPROLOL [Concomitant]
     Active Substance: METOPROLOL
  8. FUROSEMIDE [Concomitant]
     Active Substance: FUROSEMIDE
  9. AMLODIPINE [Concomitant]
     Active Substance: AMLODIPINE BESYLATE
  10. XGEVA [Concomitant]
     Active Substance: DENOSUMAB
  11. MOVANTIK [Concomitant]
     Active Substance: NALOXEGOL OXALATE
  12. ALLOPURINOL [Concomitant]
     Active Substance: ALLOPURINOL
  13. DUTASTERIDE [Concomitant]
     Active Substance: DUTASTERIDE

REACTIONS (2)
  - Muscular weakness [Unknown]
  - Pyrexia [Unknown]

NARRATIVE: CASE EVENT DATE: 20220401
